FAERS Safety Report 16118731 (Version 1)
Quarter: 2019Q1

REPORT INFORMATION
  Report Type: Spontaneous
  Country: CL (occurrence: CL)
  Receive Date: 20190326
  Receipt Date: 20190326
  Transmission Date: 20190418
  Serious: Yes (Other)
  Sender: FDA-Public Use
  Company Number: CL-JNJFOC-20190335034

PATIENT
  Age: 48 Year
  Sex: Male

DRUGS (1)
  1. XARELTO [Suspect]
     Active Substance: RIVAROXABAN
     Indication: MESENTERIC ARTERY THROMBOSIS
     Route: 048

REACTIONS (4)
  - Pulmonary embolism [Unknown]
  - Product use in unapproved indication [Unknown]
  - Vena cava thrombosis [Unknown]
  - Off label use [Unknown]
